FAERS Safety Report 13688577 (Version 1)
Quarter: 2017Q2

REPORT INFORMATION
  Report Type: Spontaneous
  Country: US (occurrence: US)
  Receive Date: 20170623
  Receipt Date: 20170623
  Transmission Date: 20170830
  Serious: Yes (Other)
  Sender: FDA-Public Use
  Company Number: None

PATIENT
  Age: 61 Year
  Sex: Female
  Weight: 63.9 kg

DRUGS (6)
  1. DIETARY SUPPLEMENTS [Concomitant]
     Active Substance: DIETARY SUPPLEMENT
  2. GRAVEL ROOT [Concomitant]
  3. FENTANYL. [Suspect]
     Active Substance: FENTANYL
     Indication: INTRAOPERATIVE CARE
     Dates: start: 20161103, end: 20161103
  4. LEMON JUICE [Concomitant]
     Active Substance: LEMON JUICE
  5. PROBIOTICS [Concomitant]
     Active Substance: PROBIOTICS NOS
  6. FENTANYL. [Suspect]
     Active Substance: FENTANYL
     Indication: CHOLECYSTECTOMY
     Dates: start: 20161103, end: 20161103

REACTIONS (14)
  - Intestinal obstruction [None]
  - Stomatitis [None]
  - Dry skin [None]
  - Dyspnoea [None]
  - Asthenia [None]
  - Tinnitus [None]
  - Insomnia [None]
  - Cough [None]
  - Headache [None]
  - Chest discomfort [None]
  - Mental impairment [None]
  - Fatigue [None]
  - Skin exfoliation [None]
  - Heart rate increased [None]

NARRATIVE: CASE EVENT DATE: 20161103
